FAERS Safety Report 4467804-0 (Version None)
Quarter: 2004Q4

REPORT INFORMATION
  Report Type: 
  Country: None (occurrence: None)
  Receive Date: 20041004
  Receipt Date: 20040920
  Transmission Date: 20050328
  Serious: Yes (Hospitalization)
  Sender: FDA-Public Use
  Company Number: 2004068312

PATIENT
  Age: 54 Year
  Sex: Female

DRUGS (6)
  1. ATARAX [Suspect]
     Indication: ILL-DEFINED DISORDER
     Dosage: ORAL
     Route: 048
     Dates: end: 20040627
  2. CLONAZEPAM [Suspect]
     Indication: ILL-DEFINED DISORDER
     Dates: end: 20040627
  3. LAMOTRIGINE [Concomitant]
  4. CLOZAPINE [Concomitant]
  5. LEVOTHYROXINE SODIUM [Concomitant]
  6. LITHIUM CARBONATE [Suspect]
     Indication: ILL-DEFINED DISORDER
     Dosage: 1000 MG, ORAL
     Route: 048
     Dates: end: 20040628

REACTIONS (7)
  - CEREBRAL ISCHAEMIA [None]
  - DEPRESSED LEVEL OF CONSCIOUSNESS [None]
  - ENCEPHALOPATHY [None]
  - MUSCULAR WEAKNESS [None]
  - PERIPHERAL COLDNESS [None]
  - SOMNOLENCE [None]
  - STUPOR [None]
